FAERS Safety Report 10901360 (Version 1)
Quarter: 2015Q1

REPORT INFORMATION
  Report Type: Spontaneous
  Country: US (occurrence: None)
  Receive Date: 20150303
  Receipt Date: 20150303
  Transmission Date: 20150721
  Serious: Yes (Hospitalization)
  Sender: FDA-Public Use
  Company Number: 201502126

PATIENT
  Age: 44 Year
  Sex: Male

DRUGS (1)
  1. TESTIM [Suspect]
     Active Substance: TESTOSTERONE
     Indication: BLOOD TESTOSTERONE DECREASED
     Route: 062
     Dates: start: 20120501, end: 20120816

REACTIONS (4)
  - Economic problem [None]
  - Myocardial infarction [None]
  - Pain [None]
  - Unevaluable event [None]

NARRATIVE: CASE EVENT DATE: 20120620
